FAERS Safety Report 9959439 (Version 1)
Quarter: 2014Q1

REPORT INFORMATION
  Report Type: Report from Study
  Country: US (occurrence: US)
  Receive Date: 20140305
  Receipt Date: 20140305
  Transmission Date: 20141002
  Serious: No
  Sender: FDA-Public Use
  Company Number: US-ABBVIE-13P-163-1102588-00

PATIENT
  Sex: Female
  Weight: 54.48 kg

DRUGS (2)
  1. HUMIRA [Suspect]
     Indication: PSORIATIC ARTHROPATHY
     Dates: start: 201005, end: 201304
  2. VIREAD [Concomitant]
     Indication: HEPATITIS B VIRUS TEST POSITIVE

REACTIONS (1)
  - Psoriasis [Not Recovered/Not Resolved]
